FAERS Safety Report 15073555 (Version 4)
Quarter: 2018Q3

REPORT INFORMATION
  Report Type: Report from Study
  Country: US (occurrence: US)
  Receive Date: 20180627
  Receipt Date: 20180927
  Transmission Date: 20181010
  Serious: Yes (Other)
  Sender: FDA-Public Use
  Company Number: PHEH2018US024437

PATIENT
  Age: 54 Year
  Sex: Female

DRUGS (3)
  1. ILARIS [Suspect]
     Active Substance: CANAKINUMAB
     Indication: FAMILIAL MEDITERRANEAN FEVER
     Dosage: 150 MG, Q4W
     Route: 058
  2. ILARIS [Suspect]
     Active Substance: CANAKINUMAB
     Indication: CRYOPYRIN ASSOCIATED PERIODIC SYNDROME
  3. ILARIS [Suspect]
     Active Substance: CANAKINUMAB
     Indication: MUCKLE-WELLS SYNDROME

REACTIONS (22)
  - Myoclonic epilepsy [Recovered/Resolved]
  - Muscle spasms [Unknown]
  - Back pain [Unknown]
  - Musculoskeletal pain [Unknown]
  - Breath sounds abnormal [Not Recovered/Not Resolved]
  - Headache [Unknown]
  - Malaise [Unknown]
  - Nasal congestion [Recovered/Resolved]
  - Decreased appetite [Unknown]
  - Nausea [Unknown]
  - Muscle rigidity [Unknown]
  - Dyskinesia [Unknown]
  - Pain [Unknown]
  - Postictal state [Unknown]
  - Motor dysfunction [Unknown]
  - Head titubation [Unknown]
  - Lethargy [Unknown]
  - Somnolence [Unknown]
  - Hemiparesis [Unknown]
  - Fatigue [Unknown]
  - Nasal congestion [Unknown]
  - Asthenia [Unknown]

NARRATIVE: CASE EVENT DATE: 20180612
